FAERS Safety Report 5267465-7 (Version None)
Quarter: 2007Q1

REPORT INFORMATION
  Report Type: 
  Country: None (occurrence: None)
  Receive Date: 20061213
  Receipt Date: 20041116
  Transmission Date: 20070707
  Serious: No
  Sender: FDA-Public Use
  Company Number: 2004UW14499

PATIENT
  Age: 67 Year
  Sex: Female
  Weight: 63.5036 kg

DRUGS (8)
  1. IRESSA [Suspect]
     Indication: NON-SMALL CELL LUNG CANCER
     Dosage: 250 MG PO
     Route: 048
     Dates: start: 20040702, end: 20041108
  2. TENORMIN [Concomitant]
  3. TYLENOL [Concomitant]
  4. PREMARIN [Concomitant]
  5. ULTRAM [Concomitant]
  6. GENERAL MULTIPURPOSE PURE FOOD VITAMIN [Concomitant]
  7. PROBIOTICA [Concomitant]
  8. ZITHROMAX [Concomitant]

REACTIONS (3)
  - DIARRHOEA [None]
  - DISEASE PROGRESSION [None]
  - EYE PAIN [None]
